FAERS Safety Report 8825277 (Version 1)
Quarter: 2012Q4

REPORT INFORMATION
  Report Type: 
  Country: CA (occurrence: CA)
  Receive Date: 20121004
  Receipt Date: 20121004
  Transmission Date: 20130627
  Serious: Yes (Disabling)
  Sender: FDA-Public Use
  Company Number: CA-WATSON-2012-16592

PATIENT

DRUGS (3)
  1. TRAMADOL HYDROCHLORIDE AND ACETAMINOPHEN [Suspect]
     Indication: PAIN
     Dosage: 37.5/325 mg, bid
     Route: 048
     Dates: start: 20120910, end: 20120917
  2. DIAZEPAM [Concomitant]
     Indication: ANXIETY
     Dosage: Apotex, 1 tablet BID-TID
     Route: 048
     Dates: start: 20120901
  3. PROGESTERONE [Concomitant]
     Indication: MENOPAUSE
     Dosage: 0.5 ml, bid
     Route: 061
     Dates: start: 20120601

REACTIONS (2)
  - Nausea [Recovered/Resolved]
  - Drug effect decreased [Recovered/Resolved]
